FAERS Safety Report 10391093 (Version 1)
Quarter: 2014Q3

REPORT INFORMATION
  Report Type: Report from Study
  Country: US (occurrence: US)
  Receive Date: 20140818
  Receipt Date: 20140818
  Transmission Date: 20150326
  Serious: Yes (Hospitalization)
  Sender: FDA-Public Use
  Company Number: US-GLAXOSMITHKLINE-A1085204A

PATIENT
  Age: 55 Year
  Sex: Female

DRUGS (2)
  1. TEMODAR [Suspect]
     Active Substance: TEMOZOLOMIDE
     Indication: EPENDYMOMA
     Dosage: 150MGM2 CYCLIC
     Route: 048
     Dates: start: 20130226, end: 20131107
  2. LAPATINIB [Suspect]
     Active Substance: LAPATINIB
     Indication: EPENDYMOMA
     Dosage: 1250MG PER DAY
     Route: 048
     Dates: start: 20130226, end: 20140803

REACTIONS (1)
  - Lymphoma [Unknown]

NARRATIVE: CASE EVENT DATE: 20140804
